FAERS Safety Report 22904209 (Version 6)
Quarter: 2024Q1

REPORT INFORMATION
  Report Type: Report from Study
  Country: IE (occurrence: IE)
  Receive Date: 20230905
  Receipt Date: 20240103
  Transmission Date: 20240410
  Serious: Yes (Hospitalization, Other)
  Sender: FDA-Public Use
  Company Number: IE-Vifor (International) Inc.-VIT-2023-05883

PATIENT
  Age: 31 Year
  Sex: Female

DRUGS (4)
  1. AVACOPAN [Suspect]
     Active Substance: AVACOPAN
     Indication: Granulomatosis with polyangiitis
     Dosage: 30 MILLIGRAM, QD
     Route: 065
     Dates: start: 20230727
  2. AVACOPAN [Suspect]
     Active Substance: AVACOPAN
     Dosage: 20 MILLIGRAM, QD
     Route: 065
     Dates: start: 202308, end: 202312
  3. AVACOPAN [Suspect]
     Active Substance: AVACOPAN
     Dosage: 20 MILLIGRAM, QD
     Route: 065
     Dates: start: 20231221
  4. ROSUVASTATIN [Concomitant]
     Active Substance: ROSUVASTATIN
     Dates: start: 20231221

REACTIONS (8)
  - Abscess drainage [Recovering/Resolving]
  - Pyrexia [Recovering/Resolving]
  - Neutropenia [Recovered/Resolved]
  - Spontaneous bacterial peritonitis [Unknown]
  - Neutropenia [Recovered/Resolved]
  - Alopecia [Unknown]
  - Escherichia urinary tract infection [Recovered/Resolved]
  - Off label use [Unknown]

NARRATIVE: CASE EVENT DATE: 20230101
